FAERS Safety Report 6969315-7 (Version None)
Quarter: 2010Q3

REPORT INFORMATION
  Report Type: 
  Country: None (occurrence: None)
  Receive Date: 20100907
  Receipt Date: 20100901
  Transmission Date: 20110219
  Serious: Yes (Life-Threatening)
  Sender: FDA-Public Use
  Company Number: JP-ELI_LILLY_AND_COMPANY-JP201008008611

PATIENT
  Sex: Male
  Weight: 49 kg

DRUGS (11)
  1. ALIMTA [Suspect]
     Indication: LUNG ADENOCARCINOMA STAGE IV
     Dosage: 750 MG (500MG/M2), EVERY 21 DAYS
     Route: 042
     Dates: start: 20100728, end: 20100818
  2. CARBOPLATIN [Concomitant]
     Indication: LUNG ADENOCARCINOMA STAGE IV
     Dosage: 580 MG (AUC5), EVERY 21 DAYS
     Route: 042
     Dates: start: 20100728, end: 20100818
  3. AVASTIN [Concomitant]
     Indication: LUNG ADENOCARCINOMA STAGE IV
     Dosage: 750 MG (15 MG/KG), EVERY 21 DAYS
     Route: 042
     Dates: start: 20100728, end: 20100818
  4. PANVITAN [Concomitant]
     Indication: PROPHYLAXIS
     Dosage: 1 G, DAILY (1/D)
     Route: 048
     Dates: start: 20100709
  5. VITAMIN B-12 [Concomitant]
     Dosage: UNK, UNKNOWN
     Route: 065
  6. MEDICON [Concomitant]
     Indication: COUGH
     Dosage: 30 MG, 3/D
     Route: 048
     Dates: start: 20100602
  7. LOXONIN [Concomitant]
     Indication: PAIN
     Dosage: 60 MG, 3/D
     Route: 048
     Dates: start: 20100602
  8. MUCOSTA [Concomitant]
     Indication: PROPHYLAXIS
     Dosage: 100 MG, 3/D
     Route: 048
     Dates: start: 20100602
  9. MYSLEE [Concomitant]
     Indication: INSOMNIA
     Dosage: 5 MG, DAILY (1/D)
     Route: 048
     Dates: start: 20100709
  10. ADONA [Concomitant]
     Indication: HAEMOPTYSIS
     Dosage: 30 MG, 3/D
     Route: 048
     Dates: start: 20100722
  11. OXYCONTIN [Concomitant]
     Indication: PAIN
     Dosage: 5 MG, 2/D
     Route: 048
     Dates: start: 20100723

REACTIONS (2)
  - HAEMOPTYSIS [None]
  - NEUTROPHIL COUNT DECREASED [None]
